FAERS Safety Report 18022826 (Version 1)
Quarter: 2020Q3

REPORT INFORMATION
  Report Type: Spontaneous
  Country: ES (occurrence: ES)
  Receive Date: 20200715
  Receipt Date: 20200715
  Transmission Date: 20201103
  Serious: Yes (Other)
  Sender: FDA-Public Use
  Company Number: ES-AUROBINDO-AUR-APL-2020-034478

PATIENT
  Age: 52 Year
  Sex: Female

DRUGS (3)
  1. PARACETAMOL [Suspect]
     Active Substance: ACETAMINOPHEN
     Indication: PRODUCT USED FOR UNKNOWN INDICATION
     Dosage: 1 GRAM, 3 TIMES A DAY
     Route: 048
     Dates: start: 20191028, end: 20191109
  2. CLINDAMYCIN. [Suspect]
     Active Substance: CLINDAMYCIN
     Indication: LUNG ABSCESS
     Dosage: 600 MILLIGRAM, FOUR TIMES/DAY
     Route: 042
     Dates: start: 20191031, end: 20191105
  3. CEFTRIAXONE. [Suspect]
     Active Substance: CEFTRIAXONE
     Indication: LUNG ABSCESS
     Dosage: 2 GRAM, ONCE A DAY
     Route: 042
     Dates: start: 20191028, end: 20191104

REACTIONS (1)
  - Hepatitis cholestatic [Recovered/Resolved]

NARRATIVE: CASE EVENT DATE: 20191104
